FAERS Safety Report 8634812 (Version 2)
Quarter: 2013Q2

REPORT INFORMATION
  Report Type: Spontaneous
  Country: US (occurrence: US)
  Receive Date: 20120626
  Receipt Date: 20130430
  Transmission Date: 20140414
  Serious: Yes (Hospitalization, Disabling)
  Sender: FDA-Public Use
  Company Number: US-BAYER-2012-061864

PATIENT
  Age: 41 Year
  Sex: Female

DRUGS (10)
  1. YAZ [Suspect]
     Dosage: UNK
     Dates: start: 200608, end: 20070121
  2. YASMIN [Suspect]
  3. OCELLA [Suspect]
  4. SYNTHROID [Concomitant]
     Dosage: 75 ?G, QD
     Dates: start: 20061227, end: 20070702
  5. AMPICILLIN [Concomitant]
     Indication: ROSACEA
     Dosage: 500 MG, BID
  6. SPIRONOLACTONE [Concomitant]
     Indication: SKIN DISORDER
     Dosage: 50 MG, BID
  7. SERTRALINE [Concomitant]
     Dosage: 100 MG, UNK
     Dates: start: 20060908, end: 20070624
  8. ZOLOFT [Concomitant]
     Dosage: 200 MG, QD
  9. MOTRIN [Concomitant]
     Dosage: 800 MG, TID
  10. KLONOPIN [Concomitant]
     Dosage: UNK UNK, PRN

REACTIONS (6)
  - Deep vein thrombosis [Recovered/Resolved]
  - Injury [Recovered/Resolved]
  - Pain [Recovered/Resolved]
  - Deformity [Recovered/Resolved]
  - Anhedonia [None]
  - Anxiety [None]
